FAERS Safety Report 10655182 (Version 1)
Quarter: 2014Q4

REPORT INFORMATION
  Report Type: Spontaneous
  Country: TR (occurrence: None)
  Receive Date: 20141212
  Receipt Date: 20141212
  Transmission Date: 20150529
  Serious: Yes (Hospitalization)
  Sender: FDA-Public Use
  Company Number: 8001254

PATIENT
  Age: 9 Year
  Sex: Female
  Weight: 13 kg

DRUGS (3)
  1. SAIZEN [Suspect]
     Active Substance: SOMATROPIN
     Indication: GROWTH HORMONE DEFICIENCY
     Dosage: 7 IN 1-2) (25 MCG)
     Dates: start: 20141127
  2. EUTHYROX [Suspect]
     Active Substance: LEVOTHYROXINE SODIUM
     Indication: THYROID DISORDER
  3. CONVULEX /00228501/ (VALPROIC ACID) (VALPROIC ACID) [Concomitant]
     Active Substance: VALPROIC ACID

REACTIONS (1)
  - Cardiac septal defect [None]
